FAERS Safety Report 5239981-5 (Version None)
Quarter: 2007Q1

REPORT INFORMATION
  Report Type: 
  Country: None (occurrence: None)
  Receive Date: 20070216
  Receipt Date: 20070209
  Transmission Date: 20070707
  Serious: Yes (Other)
  Sender: FDA-Public Use
  Company Number: US-PFIZER INC-2007000442

PATIENT
  Sex: Male
  Weight: 91.6 kg

DRUGS (6)
  1. CHANTIX [Suspect]
     Indication: SMOKING CESSATION THERAPY
     Dates: start: 20061016, end: 20060101
  2. DILANTIN [Concomitant]
  3. LEVOXYL [Concomitant]
  4. OXYBUTYNIN [Concomitant]
  5. VYTORIN [Concomitant]
  6. PLAVIX [Concomitant]

REACTIONS (4)
  - DEPENDENCE [None]
  - IRRITABILITY [None]
  - NERVOUSNESS [None]
  - WEIGHT INCREASED [None]
